FAERS Safety Report 5495253-5 (Version None)
Quarter: 2007Q4

REPORT INFORMATION
  Report Type: 
  Country: None (occurrence: None)
  Receive Date: 20071023
  Receipt Date: 20070911
  Transmission Date: 20080405
  Serious: Yes (Hospitalization)
  Sender: FDA-Public Use
  Company Number: 2007US001771

PATIENT
  Age: 64 Year
  Sex: Male
  Weight: 68.9 kg

DRUGS (7)
  1. PROGRAF [Suspect]
     Indication: RENAL TRANSPLANT
     Dosage: 1 MG, BID, ORAL
     Route: 048
     Dates: start: 20020301
  2. TOPROL-XL [Concomitant]
  3. K-PHOS (POTASSIUM PHOSPHATE MONOBASIC) [Concomitant]
  4. CATAPRES [Concomitant]
  5. MULTI-VIT (VITAMINS NOS) [Concomitant]
  6. FISH OIL (FISH OIL) [Concomitant]
  7. TUMS [Concomitant]

REACTIONS (10)
  - COELIAC DISEASE [None]
  - DIARRHOEA [None]
  - GASTROINTESTINAL INFLAMMATION [None]
  - GRANULOCYTE COUNT INCREASED [None]
  - LACTOSE INTOLERANCE [None]
  - MALABSORPTION [None]
  - MONOCYTE COUNT INCREASED [None]
  - PNEUMONIA [None]
  - WEIGHT FLUCTUATION [None]
  - WHITE BLOOD CELL COUNT ABNORMAL [None]
